FAERS Safety Report 26113494 (Version 1)
Quarter: 2025Q4

REPORT INFORMATION
  Report Type: Spontaneous
  Country: CN (occurrence: CN)
  Receive Date: 20251202
  Receipt Date: 20251202
  Transmission Date: 20260117
  Serious: Yes (Life-Threatening, Hospitalization)
  Sender: ALEXION PHARMACEUTICALS
  Company Number: CN-ASTRAZENECA-202511CHN026677CN

PATIENT
  Age: 63 Year
  Sex: Male

DRUGS (3)
  1. CRESTOR [Suspect]
     Active Substance: ROSUVASTATIN CALCIUM
     Indication: Lipid management
     Dosage: 10.000000 MILLIGRAM,1 TIMES 1 DAY
  2. SULFAMETHOXAZOLE [Suspect]
     Active Substance: SULFAMETHOXAZOLE
     Indication: Infection
     Dosage: 2.000000 DOSAGE FORM,3 TIMES 1 DAY
  3. NINTEDANIB ESYLATE [Concomitant]
     Active Substance: NINTEDANIB ESYLATE
     Indication: Infection
     Dosage: 15.000000 MILLIGRAM,2 TIMES 1 DAY
     Dates: start: 20250501, end: 20251115

REACTIONS (3)
  - Blood bilirubin increased [Unknown]
  - Jaundice [Unknown]
  - Liver injury [Unknown]

NARRATIVE: CASE EVENT DATE: 20251115
